FAERS Safety Report 9843340 (Version 1)
Quarter: 2013Q4

REPORT INFORMATION
  Report Type: Spontaneous
  Country: US (occurrence: None)
  Receive Date: 20131223
  Receipt Date: 20131223
  Transmission Date: 20140711
  Serious: Yes (Other)
  Sender: FDA-Public Use
  Company Number: 219680LEO

PATIENT
  Age: 63 Year
  Sex: Female

DRUGS (4)
  1. PICATO [Suspect]
     Indication: ACTINIC KERATOSIS
  2. LEVOTHYROXINE (LEVOTHYROXINE) [Concomitant]
  3. LATANOPROST (LATANOPROST) (NONE) [Concomitant]
  4. VITAMINS (VITAMINS NOS) [Concomitant]

REACTIONS (6)
  - Pruritus [None]
  - Burning sensation [None]
  - Erythema [None]
  - Skin discomfort [None]
  - Incorrect drug administration duration [None]
  - Drug administered at inappropriate site [None]
